FAERS Safety Report 6696338-8 (Version None)
Quarter: 2010Q2

REPORT INFORMATION
  Report Type: 
  Country: None (occurrence: None)
  Receive Date: 20100426
  Receipt Date: 20100422
  Transmission Date: 20101027
  Serious: Yes (Other)
  Sender: FDA-Public Use
  Company Number: BR-B.I. PHARMACEUTICALS,INC./RIDGEFIELD-2010-BR-00338BR

PATIENT
  Sex: Female

DRUGS (1)
  1. ATENSINA [Suspect]
     Dosage: NR
     Route: 048

REACTIONS (3)
  - BLOOD PRESSURE INCREASED [None]
  - EYE IRRITATION [None]
  - HEADACHE [None]
